FAERS Safety Report 24114242 (Version 1)
Quarter: 2024Q3

REPORT INFORMATION
  Report Type: Spontaneous
  Country: FR (occurrence: FR)
  Receive Date: 20240720
  Receipt Date: 20240720
  Transmission Date: 20241017
  Serious: Yes (Hospitalization, Other)
  Sender: NOVARTIS
  Company Number: None

PATIENT
  Age: 38 Year
  Sex: Female

DRUGS (4)
  1. TEGRETOL [Suspect]
     Active Substance: CARBAMAZEPINE
     Indication: Medication error
     Dosage: UNK (1 COMPRIM? 1/2, COMPRIM? PELLICUL? S?CABLE ? LIB?RATION PROLONG?E)
     Route: 048
     Dates: start: 20240620, end: 20240620
  2. TROPATEPINE HYDROCHLORIDE [Suspect]
     Active Substance: TROPATEPINE HYDROCHLORIDE
     Indication: Medication error
     Dosage: 1 DOSAGE FORM, QD (1 COMPRIM? DE 10 MG)
     Route: 048
     Dates: start: 20240620, end: 20240620
  3. TRANXENE [Suspect]
     Active Substance: CLORAZEPATE DIPOTASSIUM
     Indication: Medication error
     Dosage: UNK (1 COMPRIM?)
     Route: 048
     Dates: start: 20240620, end: 20240620
  4. OLANZAPINE [Suspect]
     Active Substance: OLANZAPINE
     Indication: Medication error
     Dosage: UNK (3 COMPRIM?S DE 10 MG)
     Route: 048
     Dates: start: 20240620, end: 20240620

REACTIONS (2)
  - Medication error [Recovered/Resolved]
  - Hypotension [Recovered/Resolved]

NARRATIVE: CASE EVENT DATE: 20240620
